FAERS Safety Report 12581496 (Version 6)
Quarter: 2016Q4

REPORT INFORMATION
  Report Type: Spontaneous
  Country: JP (occurrence: JP)
  Receive Date: 20160721
  Receipt Date: 20161214
  Transmission Date: 20170207
  Serious: Yes (Death, Life-Threatening, Other)
  Sender: FDA-Public Use
  Company Number: JP-ALXN-A201605322AA

PATIENT
  Age: 8 Week
  Sex: Female
  Weight: 2.6 kg

DRUGS (43)
  1. DOBUTREX [Concomitant]
     Active Substance: DOBUTAMINE HYDROCHLORIDE
     Indication: PULMONARY HYPERTENSION
     Dosage: 40 MG, QD
     Route: 041
     Dates: start: 20160427, end: 20160430
  2. VECURONIUM [Concomitant]
     Active Substance: VECURONIUM BROMIDE
     Indication: SEDATION
     Dosage: 0.6 MG, QD
     Route: 041
     Dates: start: 20160427, end: 20160501
  3. VECURONIUM [Concomitant]
     Active Substance: VECURONIUM BROMIDE
     Dosage: 6 MG, QD
     Route: 041
     Dates: start: 20160622, end: 20160710
  4. FLOLAN [Concomitant]
     Active Substance: EPOPROSTENOL SODIUM
     Indication: PULMONARY HYPERTENSION
     Dosage: 30 MG, QD
     Route: 041
     Dates: start: 20160428, end: 20160502
  5. PYDOXAL [Concomitant]
     Active Substance: PYRIDOXAL
     Dosage: 20 MG, QD
     Route: 048
     Dates: start: 20160513, end: 20160519
  6. BIO-THREE [Concomitant]
     Active Substance: HERBALS
     Indication: DIARRHOEA
     Dosage: 0.33 DF, TID
     Route: 048
     Dates: start: 20160603, end: 20160613
  7. REVATIO [Concomitant]
     Active Substance: SILDENAFIL CITRATE
     Indication: PULMONARY HYPERTENSION
     Dosage: 0.5 MG, QID
     Route: 048
     Dates: start: 20160614, end: 20160620
  8. TRACLEER [Concomitant]
     Active Substance: BOSENTAN
     Indication: PULMONARY HYPERTENSION
     Dosage: 1 MG, BID (ALSO REPORTED 0.5 MG/KG)
     Route: 048
     Dates: start: 20160704, end: 20160710
  9. PULMICORT TURBUHALER [Concomitant]
     Active Substance: BUDESONIDE
     Indication: LUNG DISORDER
     Dosage: 0.5 MG, BID
     Dates: start: 20160509, end: 20160625
  10. REVATIO [Concomitant]
     Active Substance: SILDENAFIL CITRATE
     Dosage: 2.5 MG, QID
     Route: 048
     Dates: start: 20160624, end: 20160627
  11. GASTER [Concomitant]
     Active Substance: FAMOTIDINE
     Indication: PROPHYLAXIS
     Dosage: 2 MG, QD
     Route: 041
     Dates: start: 20160706, end: 20160710
  12. INOVAN                             /00360702/ [Concomitant]
     Dosage: 20 MG, QD
     Route: 041
     Dates: start: 20160702, end: 20160710
  13. FUROSEMIDE. [Concomitant]
     Active Substance: FUROSEMIDE
     Indication: OLIGURIA
     Dosage: 3 MG, BID
     Route: 041
     Dates: start: 20160430, end: 20160509
  14. PYDOXAL [Concomitant]
     Active Substance: PYRIDOXAL
     Dosage: 30 MG, TID
     Route: 048
     Dates: start: 20160627, end: 20160710
  15. REVATIO [Concomitant]
     Active Substance: SILDENAFIL CITRATE
     Dosage: 3 MG, QID
     Route: 048
     Dates: start: 20160627, end: 20160710
  16. MIDAZOLAM [Concomitant]
     Active Substance: MIDAZOLAM\MIDAZOLAM HYDROCHLORIDE
     Dosage: 10 MG, QD
     Route: 041
     Dates: start: 20160706, end: 20160710
  17. HYDROCORTONE                       /00028601/ [Concomitant]
     Active Substance: HYDROCORTISONE
     Indication: ASTHMA
     Dosage: 14 MG, TID
     Route: 041
     Dates: start: 20160622, end: 20160706
  18. FENTANYL. [Concomitant]
     Active Substance: FENTANYL
     Indication: ANALGESIC THERAPY
     Dosage: 0.2 MG, QD
     Route: 041
     Dates: start: 20160427, end: 20160505
  19. FUROSEMIDE. [Concomitant]
     Active Substance: FUROSEMIDE
     Dosage: 1.25 MG, BID
     Route: 048
     Dates: start: 20160509, end: 20160617
  20. HYDROCORTONE                       /00028601/ [Concomitant]
     Active Substance: HYDROCORTISONE
     Dosage: UNK UNK, PRN
     Route: 065
     Dates: start: 20160709
  21. DOBUTREX [Concomitant]
     Active Substance: DOBUTAMINE HYDROCHLORIDE
     Dosage: 24 MG, QD
     Route: 041
     Dates: start: 20160625, end: 20160626
  22. VECURONIUM [Concomitant]
     Active Substance: VECURONIUM BROMIDE
     Dosage: 0.5 MG, SINGLE
     Route: 042
     Dates: start: 20160621, end: 20160621
  23. MILRILA [Concomitant]
     Active Substance: MILRINONE
     Dosage: 3 MG, QD
     Route: 041
     Dates: start: 20160707, end: 20160710
  24. SPIRONOLACTONE. [Concomitant]
     Active Substance: SPIRONOLACTONE
     Indication: OLIGURIA
     Dosage: 1.25 MG, BID
     Route: 048
     Dates: start: 20160509, end: 20160617
  25. TULOBUTEROL [Concomitant]
     Active Substance: TULOBUTEROL
     Indication: ASTHMA
     Dosage: 0.25 MG, QD
     Route: 062
     Dates: start: 20160704, end: 20160710
  26. PYRIDOXINE HYDROCHLORIDE. [Concomitant]
     Active Substance: PYRIDOXINE HYDROCHLORIDE
     Indication: PRODUCT USED FOR UNKNOWN INDICATION
     Route: 065
  27. MILRILA [Concomitant]
     Active Substance: MILRINONE
     Indication: PULMONARY HYPERTENSION
     Dosage: 2 MG, QD
     Route: 041
     Dates: start: 20160427, end: 20160428
  28. PYDOXAL [Concomitant]
     Active Substance: PYRIDOXAL
     Indication: SEIZURE
     Dosage: 30 MG, QD
     Route: 048
     Dates: start: 20160503, end: 20160512
  29. INCREMIN                           /00023544/ [Concomitant]
     Indication: IRON DEFICIENCY ANAEMIA
     Dosage: 2 ML, BID
     Route: 048
     Dates: start: 20160606, end: 20160708
  30. CEFAZOLIN SODIUM. [Concomitant]
     Active Substance: CEFAZOLIN SODIUM
     Indication: INFECTION PROPHYLAXIS
     Dosage: 100 MG, SINGLE
     Route: 042
     Dates: start: 20160621, end: 20160621
  31. PRANLUKAST [Concomitant]
     Active Substance: PRANLUKAST
     Indication: ASTHMA
     Dosage: 20 MG, BID
     Route: 048
     Dates: start: 20160704, end: 20160710
  32. FENTANYL. [Concomitant]
     Active Substance: FENTANYL
     Indication: SEDATION
     Dosage: 0.2 MG, QD
     Route: 041
     Dates: start: 20160621, end: 20160710
  33. INOVAN                             /00360702/ [Concomitant]
     Indication: PULMONARY HYPERTENSION
     Dosage: 18 MG, QD
     Route: 041
     Dates: start: 20160427, end: 20160502
  34. MILRILA [Concomitant]
     Active Substance: MILRINONE
     Dosage: 2 MG, QD
     Route: 041
     Dates: start: 20160430, end: 20160502
  35. FLOLAN [Concomitant]
     Active Substance: EPOPROSTENOL SODIUM
     Dosage: 30 MG, QD
     Route: 041
     Dates: start: 20160625, end: 20160710
  36. FUROSEMIDE. [Concomitant]
     Active Substance: FUROSEMIDE
     Dosage: 4 MG, BID
     Route: 048
     Dates: start: 20160704, end: 20160710
  37. MIDAZOLAM [Concomitant]
     Active Substance: MIDAZOLAM\MIDAZOLAM HYDROCHLORIDE
     Indication: SEDATION
     Dosage: 10 MG, QD
     Route: 041
     Dates: start: 20160621, end: 20160624
  38. STRENSIQ [Suspect]
     Active Substance: ASFOTASE ALFA
     Indication: HYPOPHOSPHATASIA
     Dosage: 6 MG, TIW
     Route: 058
     Dates: start: 20160428, end: 20160708
  39. INOVAN                             /00360702/ [Concomitant]
     Indication: HYPOTENSION
     Dosage: 12 MG, QD
     Route: 041
     Dates: start: 20160625, end: 20160626
  40. PYDOXAL [Concomitant]
     Active Substance: PYRIDOXAL
     Dosage: 10 MG, QD
     Route: 048
     Dates: start: 20160520, end: 20160527
  41. SPIRONOLACTONE. [Concomitant]
     Active Substance: SPIRONOLACTONE
     Dosage: 4 MG, BID
     Route: 048
     Dates: start: 20160704, end: 20160710
  42. REVATIO [Concomitant]
     Active Substance: SILDENAFIL CITRATE
     Dosage: 1.5 MG, QID
     Route: 048
     Dates: start: 20160620, end: 20160624
  43. METHYLPREDNISOLONE                 /00049605/ [Concomitant]
     Indication: LUNG DISORDER
     Dosage: 120 MG, QD
     Route: 041
     Dates: start: 20160706, end: 20160708

REACTIONS (7)
  - Lung disorder [Fatal]
  - Diarrhoea [Recovered/Resolved]
  - Iron deficiency anaemia [Recovering/Resolving]
  - Pneumonia [Fatal]
  - Asthma [Fatal]
  - Device related infection [Recovering/Resolving]
  - Sepsis [Fatal]

NARRATIVE: CASE EVENT DATE: 20160509
